FAERS Safety Report 7133666-6 (Version None)
Quarter: 2010Q4

REPORT INFORMATION
  Report Type: 
  Country: None (occurrence: None)
  Receive Date: 20101202
  Receipt Date: 20100617
  Transmission Date: 20110411
  Serious: Yes (Other)
  Sender: FDA-Public Use
  Company Number: US-BAYER-201026385NA

PATIENT

DRUGS (7)
  1. YASMIN [Suspect]
     Route: 048
     Dates: start: 20080301, end: 20080501
  2. YASMIN [Suspect]
     Indication: ORAL CONTRACEPTION
  3. OCELLA [Suspect]
     Route: 048
     Dates: start: 20080501, end: 20090501
  4. OCELLA [Suspect]
     Indication: ORAL CONTRACEPTION
  5. ANTIBIOTICS [Concomitant]
  6. NSAID'S [Concomitant]
     Dates: start: 19980101
  7. DEPO-PROVERA [Concomitant]
     Indication: CONTRACEPTION

REACTIONS (4)
  - CHOLECYSTITIS CHRONIC [None]
  - CHOLELITHIASIS [None]
  - INJURY [None]
  - PANCREATITIS [None]
